FAERS Safety Report 5444450-3 (Version None)
Quarter: 2007Q3

REPORT INFORMATION
  Report Type: 
  Country: None (occurrence: None)
  Receive Date: 20070906
  Receipt Date: 20070903
  Transmission Date: 20080115
  Serious: Yes (Hospitalization, Other)
  Sender: FDA-Public Use
  Company Number: HQWYE002004SEP07

PATIENT
  Sex: Male

DRUGS (13)
  1. CORDARONE [Suspect]
     Indication: ARRHYTHMIA
     Dosage: 200 MG, FREQUENCY NOT SPECIFIED
     Route: 048
  2. DOBUTAMINE HCL [Concomitant]
     Dosage: 50 MG, FREQUENCY NOT SPECIFIED
     Route: 065
  3. FUROSEMIDE [Concomitant]
     Dosage: 10 MG/ML EVERY 6 HR
     Route: 065
  4. SENOKOT [Concomitant]
     Dosage: 187 MG, FREQUENCY NOT SPECIFIED
     Route: 065
  5. DIGOXIN [Concomitant]
     Route: 065
  6. ISOSORBIDE DINITRATE [Concomitant]
     Dosage: 20 MG, FREQUENCY NOT SPECIFIED
     Route: 065
  7. KCL-ZYMA [Concomitant]
     Dosage: 10 MG, FREQUENCY NOT SPECIFIED
     Route: 065
  8. CALCIUM PANTOTHENATE/NICOTINAMIDE/PYRIDOXINE HYDROCHLORIDE/RIBOFLAVIN/ [Concomitant]
     Dosage: DOSE AND FREQUENCY NOT SPECIFIED
     Route: 048
  9. ASPIRIN [Concomitant]
     Route: 048
  10. ENOXAPARIN SODIUM [Concomitant]
     Route: 065
  11. INSULIN HUMAN [Concomitant]
     Route: 065
  12. DOPAMINE HCL [Concomitant]
     Dosage: 400 MG, FREQUENCY NOT SPECIFIED
     Route: 065
  13. PANTOPRAZOLE SODIUM [Concomitant]
     Dosage: 10 MG, FREQUENCY NOT SPECIFIED
     Route: 065

REACTIONS (2)
  - CARDIOMEGALY [None]
  - PULMONARY FIBROSIS [None]
